FAERS Safety Report 13449799 (Version 1)
Quarter: 2017Q2

REPORT INFORMATION
  Report Type: Spontaneous
  Country: US (occurrence: US)
  Receive Date: 20170417
  Receipt Date: 20170417
  Transmission Date: 20170830
  Serious: Yes (Other)
  Sender: FDA-Public Use
  Company Number: US-BION-20160389

PATIENT
  Age: 58 Year
  Sex: Male
  Weight: 95.25 kg

DRUGS (3)
  1. ALEVE [Suspect]
     Active Substance: NAPROXEN SODIUM
     Indication: BACK PAIN
     Route: 048
  2. HIGH BLOOD PRESSURE MEDICATION [Concomitant]
     Active Substance: UNSPECIFIED INGREDIENT
  3. UNKNOWN DIABETES MEDICATION [Concomitant]
     Active Substance: UNSPECIFIED INGREDIENT

REACTIONS (5)
  - Hypertension [Not Recovered/Not Resolved]
  - Product physical issue [Unknown]
  - Poor quality drug administered [Unknown]
  - Incorrect drug administration duration [Unknown]
  - Intentional overdose [Unknown]
